FAERS Safety Report 5739495-X (Version None)
Quarter: 2008Q2

REPORT INFORMATION
  Report Type: 
  Country: None (occurrence: None)
  Receive Date: 20080515
  Receipt Date: 20080507
  Transmission Date: 20081010
  Serious: Yes (Other)
  Sender: FDA-Public Use
  Company Number: PHHY2008AU07464

PATIENT
  Age: 45 Year
  Sex: Female

DRUGS (7)
  1. FAMCICLOVIR [Suspect]
     Dosage: 750 MG/ DAY
     Route: 048
     Dates: start: 20010528, end: 20010604
  2. GENTAMICIN SULFATE [Suspect]
     Indication: AGRANULOCYTOSIS
     Dosage: 320 MG/ DAY
     Route: 042
     Dates: start: 20010524, end: 20010602
  3. NEUPOGEN [Suspect]
     Indication: AGRANULOCYTOSIS
     Dosage: 300 MICROGRAM/ DAY
     Route: 058
     Dates: start: 20010525, end: 20010529
  4. TIMENTIN [Suspect]
     Indication: AGRANULOCYTOSIS
     Dosage: 12.4 G/ DAY
     Route: 042
     Dates: start: 20010524, end: 20010602
  5. VANCOMYCIN HYDROCHLORIDE [Suspect]
     Indication: AGRANULOCYTOSIS
     Dosage: 2 G/ DAY
     Route: 042
     Dates: start: 20010524, end: 20010602
  6. NILSTAT [Concomitant]
     Dosage: 4 ML, QD
     Route: 048
     Dates: start: 20010524, end: 20010604
  7. SODIUM BITARTRATE [Concomitant]
     Route: 002
     Dates: start: 20010524, end: 20010604

REACTIONS (2)
  - PETECHIAE [None]
  - VASCULITIS [None]
